FAERS Safety Report 23933963 (Version 1)
Quarter: 2024Q2

REPORT INFORMATION
  Report Type: Other
  Country: US (occurrence: US)
  Receive Date: 20240603
  Receipt Date: 20240603
  Transmission Date: 20240716
  Serious: No
  Sender: FDA-Public Use
  Company Number: US-SLATERUN-2024SRREG00076

PATIENT
  Age: 25 Year
  Sex: Male
  Weight: 160 kg

DRUGS (1)
  1. GUANFACINE HYDROCHLORIDE [Suspect]
     Active Substance: GUANFACINE HYDROCHLORIDE
     Indication: Product used for unknown indication
     Route: 065

REACTIONS (4)
  - Aggression [Recovered/Resolved]
  - Product substitution issue [Unknown]
  - Incorrect product formulation administered [Unknown]
  - Agitation [Recovered/Resolved]
